FAERS Safety Report 8876603 (Version 1)
Quarter: 2012Q4

REPORT INFORMATION
  Report Type: 
  Country: US (occurrence: US)
  Receive Date: 20121023
  Receipt Date: 20121023
  Transmission Date: 20130627
  Serious: No
  Sender: FDA-Public Use
  Company Number: US-ASTELLAS-2012US007696

PATIENT
  Age: 61 Year
  Sex: Female

DRUGS (2)
  1. PROGRAF [Suspect]
     Indication: LIVER TRANSPLANT
     Dosage: 15 mg, UID/QD
     Route: 048
  2. PROGRAF [Suspect]
     Dosage: 4 mg, UID/QD
     Route: 048

REACTIONS (4)
  - Diarrhoea [Unknown]
  - Hypertension [Unknown]
  - Depression [Unknown]
  - Anxiety [Unknown]
